FAERS Safety Report 5225588-2 (Version None)
Quarter: 2007Q1

REPORT INFORMATION
  Report Type: 
  Country: None (occurrence: None)
  Receive Date: 20061201
  Receipt Date: 20060928
  Transmission Date: 20070707
  Serious: Yes (Other)
  Sender: FDA-Public Use
  Company Number: US200608002773

PATIENT
  Age: 46 Year
  Sex: Male
  Weight: 74.8 kg

DRUGS (4)
  1. CYMBALTA [Suspect]
     Indication: DEPRESSION
     Dosage: 60 MG
     Dates: start: 20060805, end: 20060809
  2. REMERON [Concomitant]
  3. RISPERDAL /SWE/ (RISPERIDONE) [Concomitant]
  4. TRAZODONE HCL [Concomitant]

REACTIONS (1)
  - CLONIC CONVULSION [None]
